FAERS Safety Report 9102475 (Version 1)
Quarter: 2013Q1

REPORT INFORMATION
  Report Type: Report from Study
  Country: US (occurrence: US)
  Receive Date: 20130218
  Receipt Date: 20130218
  Transmission Date: 20140127
  Serious: Yes (Hospitalization, Other)
  Sender: FDA-Public Use
  Company Number: US-ROCHE-1191466

PATIENT
  Age: 72 Year
  Sex: Female
  Weight: 71.73 kg

DRUGS (4)
  1. ACTEMRA [Suspect]
     Indication: RHEUMATOID ARTHRITIS
     Dosage: LAST DOSE PRIOR TO SAE:/AUG/2012,/SEP/2012,/OCT/2012 AND 15/NOV/2012
     Route: 042
     Dates: start: 20111001, end: 20121115
  2. BACLOFEN [Concomitant]
     Indication: MUSCLE SPASMS
  3. NORVASC [Concomitant]
     Indication: HYPERTENSION
  4. FOLIC ACID [Concomitant]

REACTIONS (3)
  - Diarrhoea haemorrhagic [Recovering/Resolving]
  - Vomiting [Recovering/Resolving]
  - Diverticulum [Recovered/Resolved]
